FAERS Safety Report 12095663 (Version 1)
Quarter: 2016Q1

REPORT INFORMATION
  Report Type: Other
  Country: ES (occurrence: ES)
  Receive Date: 20160219
  Receipt Date: 20160219
  Transmission Date: 20160526
  Serious: Yes (Hospitalization)
  Sender: FDA-Public Use
  Company Number: ES-IGI LABORATORIES, INC.-1048167

PATIENT
  Age: 72 Year
  Sex: Male

DRUGS (3)
  1. WARFARIN SODIUM. [Concomitant]
     Active Substance: WARFARIN SODIUM
  2. ASPIRIN. [Concomitant]
     Active Substance: ASPIRIN
  3. AQUAMEPHYTON [Suspect]
     Active Substance: PHYTONADIONE
     Indication: COAGULATION TIME PROLONGED
     Route: 042

REACTIONS (3)
  - Chest pain [Recovered/Resolved]
  - Vascular stent thrombosis [None]
  - Myocardial infarction [Recovered/Resolved]
